FAERS Safety Report 7757175-6 (Version None)
Quarter: 2011Q3

REPORT INFORMATION
  Report Type: 
  Country: None (occurrence: None)
  Receive Date: 20110916
  Receipt Date: 20110902
  Transmission Date: 20111222
  Serious: Yes (Death, Other)
  Sender: FDA-Public Use
  Company Number: PHHY2011FR69871

PATIENT
  Age: 87 Year
  Sex: Male

DRUGS (11)
  1. CRESTOR [Suspect]
     Indication: DYSLIPIDAEMIA
     Dosage: 4 DF, DAILY
     Route: 048
     Dates: end: 20110627
  2. CITALOPRAM HYDROBROMIDE [Suspect]
     Dosage: UNK UKN, UNK
     Dates: end: 20110628
  3. LOVENOX [Concomitant]
     Dosage: UNK UKN, UNK
  4. NOVOMIX [Concomitant]
     Dosage: UNK UKN, UNK
  5. CALCIPARINE [Concomitant]
     Dosage: UNK UKN, UNK
  6. VALSARTAN [Suspect]
     Dosage: UNK UKN, UNK
     Route: 048
     Dates: end: 20110628
  7. AVODART [Suspect]
     Dosage: UNK UKN, UNK
     Route: 048
     Dates: end: 20110628
  8. VITAMIN B-12 [Concomitant]
     Dosage: UNK UKN, UNK
  9. NEBIVOLOL HCL [Concomitant]
     Dosage: 5 MG, UNK
  10. ASPIRIN [Concomitant]
     Dosage: 75 MG, UNK
  11. LEVOTHYROXINE SODIUM [Concomitant]
     Dosage: 75 UG, UNK

REACTIONS (19)
  - ACUTE RESPIRATORY FAILURE [None]
  - RENAL FAILURE [None]
  - CYTOLYTIC HEPATITIS [None]
  - LUNG DISORDER [None]
  - SOMNOLENCE [None]
  - VERTIGO [None]
  - RHABDOMYOLYSIS [None]
  - GENERAL PHYSICAL HEALTH DETERIORATION [None]
  - DYSPNOEA [None]
  - HEPATITIS [None]
  - MALAISE [None]
  - HEPATIC FAILURE [None]
  - BRONCHIAL OBSTRUCTION [None]
  - RESPIRATORY DISORDER [None]
  - ORTHOSTATIC HYPOTENSION [None]
  - MULTI-ORGAN FAILURE [None]
  - PANCREATITIS [None]
  - DISTURBANCE IN ATTENTION [None]
  - RENAL TUBULAR NECROSIS [None]
